FAERS Safety Report 8960874 (Version 3)
Quarter: 2014Q1

REPORT INFORMATION
  Report Type: Spontaneous
  Country: JP (occurrence: JP)
  Receive Date: 20121212
  Receipt Date: 20140324
  Transmission Date: 20141002
  Serious: Yes (Other)
  Sender: FDA-Public Use
  Company Number: JP-ELI_LILLY_AND_COMPANY-JP201211003156

PATIENT
  Age: 65 Year
  Sex: Male

DRUGS (10)
  1. CYMBALTA [Suspect]
     Indication: DEPRESSION
     Dosage: 20 MG, QD
     Route: 048
     Dates: start: 20110509, end: 20120509
  2. REMERON [Suspect]
     Indication: DEPRESSION
     Dosage: 15 MG, QD
     Route: 048
     Dates: start: 20110507
  3. REMERON [Suspect]
     Dosage: 25 MG, UNK
     Route: 048
     Dates: start: 20110509, end: 20110704
  4. LEXAPRO [Suspect]
     Indication: DEPRESSION
     Dosage: 5 MG, QD
     Route: 048
     Dates: start: 20120731, end: 20120827
  5. RESLIN [Suspect]
     Indication: DEPRESSION
     Dosage: 12.5 MG, QD
     Route: 048
     Dates: start: 20121023, end: 20121028
  6. ROHYPNOL [Concomitant]
     Indication: INSOMNIA
     Dosage: 2 MG, QD
     Route: 048
     Dates: start: 20110606
  7. LEXOTAN [Concomitant]
     Indication: ANXIETY
     Dosage: 2 MG, QD
     Route: 048
     Dates: start: 20110523, end: 20120925
  8. YOKUKAN-SAN [Concomitant]
     Indication: SLEEP TALKING
     Dosage: 5 G, UNK
     Route: 048
     Dates: start: 20110324
  9. YOKUKAN-SAN [Concomitant]
     Indication: RAPID EYE MOVEMENTS SLEEP ABNORMAL
     Dosage: UNK
     Route: 048
  10. YOKUKAN-SAN [Concomitant]
     Dosage: UNK
     Route: 048
     Dates: start: 20121029

REACTIONS (2)
  - Rapid eye movements sleep abnormal [Recovered/Resolved]
  - Sleep talking [Recovering/Resolving]
